FAERS Safety Report 9690661 (Version 1)
Quarter: 2013Q4

REPORT INFORMATION
  Report Type: Spontaneous
  Country: US (occurrence: None)
  Receive Date: 20131114
  Receipt Date: 20131114
  Transmission Date: 20140711
  Serious: Yes (Hospitalization)
  Sender: FDA-Public Use
  Company Number: None

PATIENT
  Age: 70 Year
  Sex: Male

DRUGS (7)
  1. METFORMIN [Suspect]
     Indication: TYPE 2 DIABETES MELLITUS
     Dosage: 1 TAB, BID, ORAL
     Route: 048
  2. LISINOPRIL [Suspect]
     Indication: HYPERTENSION
  3. BICALUTAMIDE (CASODEX) 50MG TABLET [Concomitant]
  4. CLONIDINE (CATAPRES) [Concomitant]
  5. LISINOPRIL [Concomitant]
  6. METFORMIN (GLUCOPHAGE) [Concomitant]
  7. SIMVASTATIN (ZOCOR) [Concomitant]

REACTIONS (7)
  - Mental status changes [None]
  - Dehydration [None]
  - Hypotension [None]
  - Lactic acidosis [None]
  - Renal failure acute [None]
  - Metabolic encephalopathy [None]
  - Nephropathy toxic [None]
